FAERS Safety Report 11707698 (Version 2)
Quarter: 2015Q4

REPORT INFORMATION
  Report Type: Spontaneous
  Country: CL (occurrence: CL)
  Receive Date: 20151106
  Receipt Date: 20151117
  Transmission Date: 20160304
  Serious: Yes (Hospitalization)
  Sender: FDA-Public Use
  Company Number: CL-ASTRAZENECA-2015SF07791

PATIENT
  Sex: Female

DRUGS (1)
  1. SPLENDIL [Suspect]
     Active Substance: FELODIPINE
     Route: 048

REACTIONS (3)
  - Lung disorder [Unknown]
  - Gastric cyst [Unknown]
  - Intestinal cyst [Unknown]
